FAERS Safety Report 4296044-3 (Version None)
Quarter: 2004Q1

REPORT INFORMATION
  Report Type: 
  Country: None (occurrence: None)
  Receive Date: 20040212
  Receipt Date: 20040204
  Transmission Date: 20041129
  Serious: Yes (Disabling)
  Sender: FDA-Public Use
  Company Number: 2004UW01946

PATIENT
  Age: 33 Year
  Sex: Male
  Weight: 124.7392 kg

DRUGS (12)
  1. SEROQUEL [Suspect]
     Indication: BIPOLAR DISORDER
     Dosage: 100 MG PO
     Route: 048
  2. SEROQUEL [Suspect]
     Indication: SCHIZOPHRENIA
     Dosage: 100 MG PO
     Route: 048
  3. SEROQUEL [Suspect]
     Indication: BIPOLAR DISORDER
     Dosage: 200 MG PO
     Route: 048
  4. SEROQUEL [Suspect]
     Indication: SCHIZOPHRENIA
     Dosage: 200 MG PO
     Route: 048
  5. SEROQUEL [Suspect]
     Indication: BIPOLAR DISORDER
     Dosage: 400 MG PO
     Route: 048
  6. SEROQUEL [Suspect]
     Indication: SCHIZOPHRENIA
     Dosage: 400 MG PO
     Route: 048
  7. SEROQUEL [Suspect]
     Indication: BIPOLAR DISORDER
     Dosage: 100 MG BID PO
     Route: 048
     Dates: end: 20040202
  8. SEROQUEL [Suspect]
     Indication: SCHIZOPHRENIA
     Dosage: 100 MG BID PO
     Route: 048
     Dates: end: 20040202
  9. SEROQUEL [Suspect]
     Indication: BIPOLAR DISORDER
     Dosage: 25 MG PO
     Route: 048
     Dates: end: 20040202
  10. SEROQUEL [Suspect]
     Indication: SCHIZOPHRENIA
     Dosage: 25 MG PO
     Route: 048
     Dates: end: 20040202
  11. TRILEPTAL [Suspect]
  12. DEPAKOTE [Concomitant]

REACTIONS (14)
  - ANXIETY [None]
  - BLOOD PRESSURE INCREASED [None]
  - CHEST DISCOMFORT [None]
  - DISORIENTATION [None]
  - DIZZINESS [None]
  - DRY MOUTH [None]
  - DYSPHAGIA [None]
  - FEAR OF DISEASE [None]
  - FEELING ABNORMAL [None]
  - REFUSAL OF TREATMENT BY PATIENT [None]
  - RESPIRATORY RATE DECREASED [None]
  - STOMACH DISCOMFORT [None]
  - THINKING ABNORMAL [None]
  - TONGUE DISCOLOURATION [None]
